FAERS Safety Report 26068844 (Version 1)
Quarter: 2025Q4

REPORT INFORMATION
  Report Type: Spontaneous
  Country: US (occurrence: None)
  Receive Date: 20251120
  Receipt Date: 20251120
  Transmission Date: 20260118
  Serious: Yes (Hospitalization, Other)
  Sender: UCB
  Company Number: US-UCBSA-2025072267

PATIENT
  Age: 46 Year

DRUGS (3)
  1. KEPPRA [Suspect]
     Active Substance: LEVETIRACETAM
     Indication: Epilepsy
     Dosage: 1000 MILLIGRAM, 2X/DAY (BID)
  2. KEPPRA [Suspect]
     Active Substance: LEVETIRACETAM
     Dosage: 2000 MILLIGRAM, 2X/DAY (BID)
  3. NAYZILAM [Suspect]
     Active Substance: MIDAZOLAM
     Indication: Product used for unknown indication
     Dosage: UNK

REACTIONS (10)
  - Seizure [Unknown]
  - Loss of consciousness [Unknown]
  - Uterine cancer [Unknown]
  - Metastatic neoplasm [Unknown]
  - Surgery [Unknown]
  - Insurance issue [Unknown]
  - Inability to afford medication [Unknown]
  - Drug ineffective [Unknown]
  - Overdose [Unknown]
  - Incorrect dose administered [Unknown]
